FAERS Safety Report 17389436 (Version 2)
Quarter: 2020Q1

REPORT INFORMATION
  Report Type: Spontaneous
  Country: FR (occurrence: FR)
  Receive Date: 20200207
  Receipt Date: 20200220
  Transmission Date: 20200409
  Serious: Yes (Other)
  Sender: FDA-Public Use
  Company Number: FR-AUROBINDO-AUR-APL-2020-005867

PATIENT
  Age: 11 Year
  Sex: Male
  Weight: 46 kg

DRUGS (14)
  1. CYTARABINE. [Suspect]
     Active Substance: CYTARABINE
     Indication: MEDULLOBLASTOMA RECURRENT
     Dosage: 60 MILLIGRAM, EVERY WEEK
     Route: 037
     Dates: start: 20190513
  2. TRIMETHOPRIM. [Concomitant]
     Active Substance: TRIMETHOPRIM
     Dosage: 160 MILLIGRAM, EVERY WEEK
     Route: 048
  3. TRIMETHOPRIM. [Concomitant]
     Active Substance: TRIMETHOPRIM
     Indication: OPPORTUNISTIC INFECTION PROPHYLAXIS
     Dosage: 480 MILLIGRAM, EVERY WEEK
     Route: 048
  4. SULFAMETHOXAZOLE [Concomitant]
     Active Substance: SULFAMETHOXAZOLE
     Indication: OPPORTUNISTIC INFECTION PROPHYLAXIS
     Dosage: 2400 MILLIGRAM, EVERY WEEK
     Route: 048
  5. CYCLOPHOSPHAMIDE. [Suspect]
     Active Substance: CYCLOPHOSPHAMIDE
     Indication: MEDULLOBLASTOMA RECURRENT
     Dosage: 2.5 MILLIGRAM/KILOGRAM, ONCE A DAY
     Route: 048
     Dates: start: 20190520
  6. ETOPOSIDE. [Suspect]
     Active Substance: ETOPOSIDE
     Indication: MEDULLOBLASTOMA RECURRENT
     Dosage: UNK,5 INJECTIONS TOUTES LES 4SEMAINES
     Route: 039
     Dates: start: 20190429
  7. CELECOXIB. [Suspect]
     Active Substance: CELECOXIB
     Indication: MEDULLOBLASTOMA RECURRENT
     Dosage: 2 DOSAGE FORM, ONCE A DAY
     Route: 048
     Dates: start: 20190429
  8. AVASTIN [Suspect]
     Active Substance: BEVACIZUMAB
     Indication: MEDULLOBLASTOMA RECURRENT
     Dosage: 10 MILLIGRAM/KILOGRAM, EVERY WEEK
     Route: 042
     Dates: start: 20190429
  9. FENOFIBRATE. [Suspect]
     Active Substance: FENOFIBRATE
     Indication: MEDULLOBLASTOMA RECURRENT
     Dosage: 90 MILLIGRAM/SQ. METER, ONCE A DAY
     Route: 048
     Dates: start: 20190429
  10. ETOPOSIDE. [Suspect]
     Active Substance: ETOPOSIDE
     Dosage: 1 UNK, 4 WEEK
     Route: 039
     Dates: start: 20190429
  11. THALIDOMIDE [Suspect]
     Active Substance: THALIDOMIDE
     Indication: MEDULLOBLASTOMA RECURRENT
     Dosage: 3 MILLIGRAM/KILOGRAM
     Route: 048
     Dates: start: 20190429, end: 20191115
  12. ENANTONE LP [Suspect]
     Active Substance: LEUPROLIDE ACETATE
     Indication: BLOOD GROWTH HORMONE DECREASED
     Dosage: 1 DOSAGE FORM,28 DAY
     Route: 058
     Dates: start: 201910
  13. ETOPOSIDE. [Suspect]
     Active Substance: ETOPOSIDE
     Dosage: ,35-50MG/M?, LES 3 PREMI?RES SEMAINES DE CHAQUE PARTIE DE CHAQUE CYCLE UNK
     Route: 048
     Dates: start: 20190429
  14. SULFAMETHOXAZOLE [Concomitant]
     Active Substance: SULFAMETHOXAZOLE
     Dosage: 800 MILLIGRAM, EVERY WEEK
     Route: 048

REACTIONS (2)
  - Condition aggravated [Not Recovered/Not Resolved]
  - Bipolar disorder [Not Recovered/Not Resolved]

NARRATIVE: CASE EVENT DATE: 201910
